FAERS Safety Report 7663919-4 (Version None)
Quarter: 2011Q3

REPORT INFORMATION
  Report Type: 
  Country: None (occurrence: None)
  Receive Date: 20110805
  Receipt Date: 20100820
  Transmission Date: 20111222
  Serious: No
  Sender: FDA-Public Use
  Company Number: US-ABBOTT-10P-163-0665008-00

PATIENT
  Sex: Female

DRUGS (1)
  1. NIASPAN [Suspect]
     Indication: HYPERCHOLESTEROLAEMIA
     Route: 048
     Dates: start: 20100817

REACTIONS (7)
  - PARAESTHESIA [None]
  - URTICARIA [None]
  - SKIN BURNING SENSATION [None]
  - FEELING HOT [None]
  - PRURITUS [None]
  - FLUSHING [None]
  - ERYTHEMA [None]
